FAERS Safety Report 7824481 (Version 3)
Quarter: 2014Q1

REPORT INFORMATION
  Report Type: Spontaneous
  Country: US (occurrence: US)
  Receive Date: 20110224
  Receipt Date: 20140106
  Transmission Date: 20141002
  Serious: Yes (Other)
  Sender: FDA-Public Use
  Company Number: US-BAYER-2011-016359

PATIENT
  Age: 17 Year
  Sex: Female
  Weight: 57.6 kg

DRUGS (20)
  1. YAZ [Suspect]
     Route: 048
  2. YASMIN [Suspect]
     Dosage: UNK UNK, QD
     Route: 048
     Dates: start: 200506, end: 200803
  3. ALBUTEROL [Concomitant]
     Dosage: UNK
     Dates: start: 2000, end: 2009
  4. CELLCEPT [Concomitant]
     Indication: RENAL TRANSPLANT
     Dosage: 500 MG, UNK
     Dates: start: 200901
  5. PROGRAF [Concomitant]
     Indication: RENAL TRANSPLANT
     Dosage: 1 G, UNK
     Dates: start: 200001
  6. SIMVASTATIN [Concomitant]
     Indication: RENAL TRANSPLANT
     Dosage: 10 MG, UNK
     Dates: start: 200001
  7. PROTONIX [Concomitant]
     Indication: GASTROOESOPHAGEAL REFLUX DISEASE
     Dosage: 40 MG, UNK
     Dates: start: 2005
  8. REGLAN [Concomitant]
     Indication: IMPAIRED GASTRIC EMPTYING
     Dosage: 5 MG, UNK
     Dates: start: 200902, end: 200903
  9. BACTRIM [Concomitant]
     Indication: RENAL TRANSPLANT
     Dosage: UNK
     Dates: start: 200901
  10. AMOXICILLIN [Concomitant]
     Indication: HELICOBACTER GASTRITIS
     Dosage: UNK
     Dates: start: 200902, end: 200903
  11. ASPIRIN [Concomitant]
     Dosage: 81 MG, QD
  12. FLORINEF [Concomitant]
     Dosage: 0.1 MG, UNK
  13. VALCYTE [Concomitant]
     Dosage: 450 MG, QD
  14. MULTIVITAMIN [Concomitant]
     Dosage: UNK UNK, QD
  15. OMEGA 3 FATTY ACIDS [Concomitant]
     Dosage: 1 MG, UNK
  16. FOLIC ACID [Concomitant]
     Dosage: 1 MG, UNK
  17. VITAMIN B12 [Concomitant]
     Dosage: 1000 ?G, UNK
  18. LEVAQUIN [Concomitant]
     Dosage: 500 MG, UNK
  19. ORTHO TRI-CYCLEN LO [Concomitant]
  20. METRONIDAZOLE [Concomitant]

REACTIONS (11)
  - Cholelithiasis [None]
  - Cholecystitis infective [None]
  - Pain [None]
  - Emotional distress [None]
  - Deformity [None]
  - Disability [None]
  - Nausea [None]
  - Diarrhoea [None]
  - Dyspepsia [None]
  - Vomiting [None]
  - Cholecystitis chronic [None]
